FAERS Safety Report 19659060 (Version 1)
Quarter: 2021Q3

REPORT INFORMATION
  Report Type: Spontaneous
  Country: US (occurrence: US)
  Receive Date: 20210805
  Receipt Date: 20210805
  Transmission Date: 20211014
  Serious: No
  Sender: FDA-Public Use
  Company Number: US-ELI_LILLY_AND_COMPANY-US202107003565

PATIENT
  Sex: Female

DRUGS (2)
  1. BASAGLAR [Suspect]
     Active Substance: INSULIN GLARGINE
     Indication: TYPE 2 DIABETES MELLITUS
     Dosage: 34 U, BID
     Route: 058
  2. BASAGLAR [Suspect]
     Active Substance: INSULIN GLARGINE
     Dosage: 34 U, BID
     Route: 058

REACTIONS (7)
  - Infection [Unknown]
  - Localised infection [Not Recovered/Not Resolved]
  - Blood glucose increased [Unknown]
  - Urinary tract infection [Not Recovered/Not Resolved]
  - Product dose omission issue [Unknown]
  - Expired product administered [Unknown]
  - Inappropriate schedule of product administration [Unknown]
